FAERS Safety Report 11538477 (Version 1)
Quarter: 2015Q3

REPORT INFORMATION
  Report Type: Spontaneous
  Country: DE (occurrence: DE)
  Receive Date: 20150922
  Receipt Date: 20150922
  Transmission Date: 20151125
  Serious: Yes (Other)
  Sender: FDA-Public Use
  Company Number: DE-CONCORDIA PHARMACEUTICALS INC.-CO-ZO-DE-2015-062

PATIENT
  Age: 44 Year
  Sex: Male
  Weight: 76 kg

DRUGS (4)
  1. LACOSAMID [Concomitant]
     Active Substance: LACOSAMIDE
     Indication: EPILEPSY
     Route: 048
     Dates: start: 201302
  2. ZONEGRAN [Suspect]
     Active Substance: ZONISAMIDE
     Dosage: 200 MG
     Route: 048
     Dates: start: 201505, end: 20150604
  3. ZONEGRAN [Suspect]
     Active Substance: ZONISAMIDE
     Indication: EPILEPSY
     Dosage: UNKNOWN- UPTRATED IN STEPS OF 50 MG EVERY TWO WEEKS
     Route: 048
     Dates: start: 20150330, end: 201505
  4. VALPROIC ACID. [Concomitant]
     Active Substance: VALPROIC ACID
     Indication: EPILEPSY
     Route: 048

REACTIONS (4)
  - Tremor [Recovered/Resolved]
  - Anxiety [Recovered/Resolved]
  - Panic attack [Recovered/Resolved]
  - Agitation [Recovered/Resolved]

NARRATIVE: CASE EVENT DATE: 20150520
